FAERS Safety Report 23544218 (Version 1)
Quarter: 2024Q1

REPORT INFORMATION
  Report Type: Spontaneous
  Country: US (occurrence: US)
  Receive Date: 20240220
  Receipt Date: 20240220
  Transmission Date: 20240410
  Serious: No
  Sender: FDA-Public Use
  Company Number: US-SANOFI-01946251

PATIENT

DRUGS (3)
  1. DUPIXENT [Suspect]
     Active Substance: DUPILUMAB
     Indication: Dermatitis atopic
     Dosage: UNK UNK, QW
  2. DUPIXENT [Suspect]
     Active Substance: DUPILUMAB
     Dosage: QW
  3. PREDNISONE [Concomitant]
     Active Substance: PREDNISONE
     Dosage: QW

REACTIONS (1)
  - Off label use [Unknown]
